FAERS Safety Report 20431401 (Version 1)
Quarter: 2022Q1

REPORT INFORMATION
  Report Type: Spontaneous
  Country: CN (occurrence: CN)
  Receive Date: 20220204
  Receipt Date: 20220204
  Transmission Date: 20220423
  Serious: Yes (Other)
  Sender: FDA-Public Use
  Company Number: CN-ELI_LILLY_AND_COMPANY-CN202201010918

PATIENT
  Age: 71 Year
  Sex: Male
  Weight: 74 kg

DRUGS (1)
  1. OLANZAPINE [Suspect]
     Active Substance: OLANZAPINE
     Indication: Psychotic disorder
     Dosage: 15 MG, BID
     Route: 048
     Dates: start: 20211214, end: 20220118

REACTIONS (9)
  - Loss of consciousness [Recovering/Resolving]
  - Heart rate decreased [Recovering/Resolving]
  - Electrocardiogram T wave abnormal [Recovering/Resolving]
  - Sinus bradycardia [Recovering/Resolving]
  - Cerebral infarction [Recovered/Resolved]
  - Haemoglobin decreased [Unknown]
  - Blood homocysteine increased [Unknown]
  - Platelet count decreased [Unknown]
  - High density lipoprotein decreased [Unknown]

NARRATIVE: CASE EVENT DATE: 20220118
